FAERS Safety Report 19308179 (Version 1)
Quarter: 2021Q2

REPORT INFORMATION
  Report Type: Spontaneous
  Country: US (occurrence: US)
  Receive Date: 20210526
  Receipt Date: 20210526
  Transmission Date: 20210717
  Serious: Yes (Hospitalization, Other)
  Sender: FDA-Public Use
  Company Number: None

PATIENT
  Age: 83 Year
  Sex: Male
  Weight: 82.8 kg

DRUGS (1)
  1. CASIRIVIMAB AND IMDEVIMAB 1200 MG EACH ON 5/12/2021 IN NS 50 ML [Suspect]
     Active Substance: CASIRIVIMAB\IMDEVIMAB
     Indication: COVID-19
     Dosage: ?          OTHER FREQUENCY:ONCE;?
     Route: 041

REACTIONS (5)
  - Acute kidney injury [None]
  - Dyspnoea exertional [None]
  - Acute myocardial infarction [None]
  - Troponin increased [None]
  - Hypotension [None]

NARRATIVE: CASE EVENT DATE: 20210515
